FAERS Safety Report 4300343-6 (Version None)
Quarter: 2004Q1

REPORT INFORMATION
  Report Type: 
  Country: None (occurrence: None)
  Receive Date: 20040218
  Receipt Date: 20040203
  Transmission Date: 20041129
  Serious: Yes (Other)
  Sender: FDA-Public Use
  Company Number: US_0402100516

PATIENT
  Sex: Male
  Weight: 73 kg

DRUGS (2)
  1. HUMULIN N [Suspect]
     Indication: DIABETES MELLITUS
     Dosage: 25  U/IN THE MORNING
  2. HUMULIN 70/30 [Suspect]
     Indication: DIABETES MELLITUS
     Dosage: 5 U/IN THE MORNING
     Dates: start: 20031101

REACTIONS (5)
  - BLOOD GLUCOSE FLUCTUATION [None]
  - DIALYSIS [None]
  - EYE HAEMORRHAGE [None]
  - RENAL DISORDER [None]
  - VISUAL DISTURBANCE [None]
